FAERS Safety Report 6234698-2 (Version None)
Quarter: 2009Q2

REPORT INFORMATION
  Report Type: 
  Country: None (occurrence: None)
  Receive Date: 20090615
  Receipt Date: 20090615
  Transmission Date: 20091009
  Serious: Yes (Other)
  Sender: FDA-Public Use
  Company Number: None

PATIENT
  Age: 54 Year
  Sex: Female
  Weight: 113.3993 kg

DRUGS (1)
  1. COREG CR [Suspect]
     Indication: MYOCARDIAL INFARCTION
     Dosage: 20MG DAILY PO
     Route: 048
     Dates: start: 20090424, end: 20090426

REACTIONS (5)
  - FATIGUE [None]
  - FEELING ABNORMAL [None]
  - HYPERSOMNIA [None]
  - MOVEMENT DISORDER [None]
  - THINKING ABNORMAL [None]
